FAERS Safety Report 10159271 (Version 2)
Quarter: 2014Q2

REPORT INFORMATION
  Report Type: Spontaneous
  Country: TR (occurrence: TR)
  Receive Date: 20140508
  Receipt Date: 20140508
  Transmission Date: 20141212
  Serious: Yes (Other)
  Sender: FDA-Public Use
  Company Number: TR-JNJFOC-20140412369

PATIENT
  Age: 15 Year
  Sex: Male

DRUGS (1)
  1. RISPERIDONE [Suspect]
     Indication: MAJOR DEPRESSION
     Route: 048

REACTIONS (6)
  - Head injury [Unknown]
  - Syncope [Recovered/Resolved]
  - Sinus bradycardia [Recovered/Resolved]
  - Chest pain [Recovered/Resolved]
  - Loss of consciousness [Recovered/Resolved]
  - Orthostatic hypotension [Unknown]
